FAERS Safety Report 16361040 (Version 1)
Quarter: 2019Q2

REPORT INFORMATION
  Report Type: Spontaneous
  Country: US (occurrence: US)
  Receive Date: 20190419
  Receipt Date: 20190419
  Transmission Date: 20190711
  Serious: No
  Sender: FDA-Public Use
  Company Number: None

PATIENT
  Age: 59 Year
  Sex: Female

DRUGS (2)
  1. CEFTRIAXONE SODIUM 2GM APOTEX [Suspect]
     Active Substance: CEFTRIAXONE SODIUM
     Route: 042
     Dates: start: 20190322, end: 20190416
  2. BENADRYL [Concomitant]
     Active Substance: DIPHENHYDRAMINE HYDROCHLORIDE

REACTIONS (1)
  - Rash generalised [None]

NARRATIVE: CASE EVENT DATE: 20190413
